FAERS Safety Report 4404503-5 (Version None)
Quarter: 2004Q3

REPORT INFORMATION
  Report Type: 
  Country: None (occurrence: None)
  Receive Date: 20040722
  Receipt Date: 20040713
  Transmission Date: 20050211
  Serious: Yes (Other)
  Sender: FDA-Public Use
  Company Number: PHNU2004DE02470

PATIENT
  Sex: Female

DRUGS (2)
  1. ESIDRIX [Suspect]
     Route: 048
  2. LORZAAR PLUS [Concomitant]

REACTIONS (2)
  - CONDITION AGGRAVATED [None]
  - MYOPIA [None]
